FAERS Safety Report 8552329-3 (Version None)
Quarter: 2012Q3

REPORT INFORMATION
  Report Type: 
  Country: None (occurrence: None)
  Receive Date: 20120731
  Receipt Date: 20120723
  Transmission Date: 20120928
  Serious: Yes (Other)
  Sender: FDA-Public Use
  Company Number: US-BAYER-2012-048980

PATIENT
  Age: 34 Year
  Sex: Female
  Weight: 92.063 kg

DRUGS (2)
  1. MIRENA [Suspect]
     Indication: CONTRACEPTION
     Dosage: 20 MCG/24HR, CONT
     Route: 015
     Dates: start: 20070730, end: 20120515
  2. GLIPIZIDE [Concomitant]
     Indication: TYPE 2 DIABETES MELLITUS

REACTIONS (6)
  - DEVICE DIFFICULT TO USE [None]
  - VAGINAL HAEMORRHAGE [None]
  - DEVICE DISLOCATION [None]
  - NAUSEA [None]
  - DIZZINESS [None]
  - PREGNANCY WITH CONTRACEPTIVE DEVICE [None]
